FAERS Safety Report 8896339 (Version 1)
Quarter: 2012Q4

REPORT INFORMATION
  Report Type: Spontaneous
  Country: US (occurrence: None)
  Receive Date: 20121107
  Receipt Date: 20121107
  Transmission Date: 20130627
  Serious: No
  Sender: FDA-Public Use
  Company Number: None

PATIENT
  Age: 50 Year
  Sex: Female
  Weight: 104.33 kg

DRUGS (2)
  1. VIIBRYD [Suspect]
     Indication: DEPRESSION
     Dates: start: 20121012
  2. VIIBRYD [Suspect]
     Indication: DEPRESSION
     Dates: start: 20121018

REACTIONS (4)
  - Nausea [None]
  - Dizziness [None]
  - Headache [None]
  - Palpitations [None]
